FAERS Safety Report 21440900 (Version 2)
Quarter: 2022Q4

REPORT INFORMATION
  Report Type: Spontaneous
  Country: JP (occurrence: JP)
  Receive Date: 20221011
  Receipt Date: 20221020
  Transmission Date: 20230113
  Serious: Yes (Life-Threatening, Hospitalization)
  Sender: FDA-Public Use
  Company Number: JP-BAYER-2022A080640

PATIENT
  Age: 70 Year
  Sex: Female
  Weight: 43 kg

DRUGS (9)
  1. STIVARGA [Suspect]
     Active Substance: REGORAFENIB
     Indication: Colon cancer
     Dosage: 80 MG, ONCE
     Route: 048
     Dates: start: 20220104, end: 20220104
  2. STIVARGA [Suspect]
     Active Substance: REGORAFENIB
     Indication: Metastases to peritoneum
  3. OLOPATADINE [Concomitant]
     Active Substance: OLOPATADINE
     Indication: Palmar-plantar erythrodysaesthesia syndrome
     Route: 048
  4. OXYCONTIN [Concomitant]
     Active Substance: OXYCODONE HYDROCHLORIDE
     Indication: Analgesic therapy
     Dosage: DAILY DOSE 80 MG
     Route: 048
  5. OXYCONTIN [Concomitant]
     Active Substance: OXYCODONE HYDROCHLORIDE
     Indication: Colon cancer recurrent
  6. CARBAMAZEPINE [Concomitant]
     Active Substance: CARBAMAZEPINE
     Indication: Colon cancer recurrent
     Dosage: DAILY DOSE 200 MG
     Route: 048
  7. OXYCODONE HYDROCHLORIDE [Concomitant]
     Active Substance: OXYCODONE HYDROCHLORIDE
     Indication: Colon cancer recurrent
     Route: 048
  8. AZILSARTAN KAMEDOXOMIL [Concomitant]
     Active Substance: AZILSARTAN KAMEDOXOMIL
     Indication: Hypertension
     Dosage: DAILY DOSE 20 MG
     Route: 048
     Dates: start: 20200623
  9. AMLODIPINE BESYLATE [Concomitant]
     Active Substance: AMLODIPINE BESYLATE
     Indication: Hypertension
     Dosage: DAILY DOSE 5 MG
     Route: 048
     Dates: start: 20200623

REACTIONS (5)
  - Altered state of consciousness [Recovered/Resolved]
  - Seizure [Recovered/Resolved]
  - Posterior reversible encephalopathy syndrome [Recovering/Resolving]
  - Hypertension [Unknown]
  - Off label use [None]

NARRATIVE: CASE EVENT DATE: 20220101
